FAERS Safety Report 15732667 (Version 1)
Quarter: 2018Q4

REPORT INFORMATION
  Report Type: Spontaneous
  Country: FI (occurrence: FI)
  Receive Date: 20181217
  Receipt Date: 20181217
  Transmission Date: 20190205
  Serious: Yes (Life-Threatening, Other)
  Sender: FDA-Public Use
  Company Number: FI-ASTRAZENECA-2018SF62822

PATIENT
  Age: 39 Year
  Sex: Male

DRUGS (6)
  1. LEPONEX [Suspect]
     Active Substance: CLOZAPINE
     Indication: PRODUCT USED FOR UNKNOWN INDICATION
     Route: 065
  2. KETIPINOR [Suspect]
     Active Substance: QUETIAPINE FUMARATE
     Indication: SCHIZOPHRENIA
     Route: 048
     Dates: start: 2010
  3. KETIPINOR [Suspect]
     Active Substance: QUETIAPINE FUMARATE
     Indication: SOMATIC SYMPTOM DISORDER
     Route: 048
     Dates: start: 2010
  4. DOXAL [DOXEPIN HYDROCHLORIDE] [Suspect]
     Active Substance: DOXEPIN HYDROCHLORIDE
     Indication: PRODUCT USED FOR UNKNOWN INDICATION
     Dosage: STRENGTH: 25 MG
     Route: 048
     Dates: start: 201809
  5. KETIPINOR [Suspect]
     Active Substance: QUETIAPINE FUMARATE
     Indication: SCHIZOPHRENIA
     Route: 048
  6. KETIPINOR [Suspect]
     Active Substance: QUETIAPINE FUMARATE
     Indication: SOMATIC SYMPTOM DISORDER
     Route: 048

REACTIONS (6)
  - Pneumonia [Recovered/Resolved]
  - Embolism [Recovered/Resolved]
  - Suicidal ideation [Recovered/Resolved]
  - Suicide attempt [Recovered/Resolved]
  - Pain [Recovered/Resolved]
  - Pyrexia [Recovered/Resolved]

NARRATIVE: CASE EVENT DATE: 2010
